FAERS Safety Report 8119466-9 (Version None)
Quarter: 2012Q1

REPORT INFORMATION
  Report Type: 
  Country: None (occurrence: None)
  Receive Date: 20120207
  Receipt Date: 20120125
  Transmission Date: 20120608
  Serious: Yes (Hospitalization)
  Sender: FDA-Public Use
  Company Number: PHHY2012DE007215

PATIENT
  Sex: Male

DRUGS (2)
  1. GLEEVEC [Suspect]
     Indication: CHRONIC MYELOID LEUKAEMIA
     Dosage: 400 MG, DAILY
  2. GLEEVEC [Suspect]
     Dosage: 400 MG, DAILY  3 TIMES A WEEK
     Route: 048

REACTIONS (2)
  - HYDROCELE [None]
  - THROMBOCYTOPENIA [None]
